FAERS Safety Report 9323696 (Version 6)
Quarter: 2014Q2

REPORT INFORMATION
  Report Type: Report from Study
  Country: DE (occurrence: DE)
  Receive Date: 20130603
  Receipt Date: 20140604
  Transmission Date: 20141212
  Serious: Yes (Death, Hospitalization)
  Sender: FDA-Public Use
  Company Number: PHHO2012DE001905

PATIENT
  Sex: 0

DRUGS (12)
  1. SOM230 [Suspect]
     Indication: NEUROENDOCRINE TUMOUR
     Dosage: 60 MG, DAILY
     Dates: start: 20120223
  2. AFINITOR [Suspect]
     Indication: NEUROENDOCRINE TUMOUR
     Dosage: 10 MG, UNK
     Route: 048
     Dates: start: 20111201, end: 20120106
  3. AFINITOR [Suspect]
     Dosage: 10 MG, UNK
     Route: 048
     Dates: end: 20120905
  4. BISOPROLOL [Concomitant]
     Indication: HYPERTENSION
     Dosage: 2.5 MG, UNK
     Dates: start: 20100101
  5. GLIMEPIRIDE [Concomitant]
     Indication: DIABETES MELLITUS
     Dosage: 1 MG, UNK
     Dates: start: 20120625
  6. METAMIZOLE [Concomitant]
     Indication: PAIN
     Dosage: 500 G, UNK
     Dates: start: 20111229
  7. RAMIPRIL [Concomitant]
     Indication: PROPHYLAXIS
     Dosage: UNK
     Dates: start: 2010
  8. FENTANYL [Concomitant]
     Indication: PAIN
     Dosage: 75 MG, UNK
     Dates: start: 20120614
  9. PANTOZOL [Concomitant]
     Indication: PROPHYLAXIS
     Dosage: 40 MG, UNK
     Dates: start: 20111201
  10. ASS [Concomitant]
     Indication: PROPHYLAXIS
     Dosage: 100 MG, UNK
     Dates: start: 20111201
  11. NOVALGIN [Concomitant]
     Indication: PAIN
     Dosage: 500 MG, UNK
     Dates: start: 20110101
  12. ISMN [Concomitant]
     Indication: HYPERTENSION
     Dosage: 40 UKN, UNK
     Dates: start: 20111201

REACTIONS (7)
  - Hyperglycaemia [Recovered/Resolved]
  - Nausea [Not Recovered/Not Resolved]
  - Vomiting [Recovered/Resolved]
  - Bronchopulmonary aspergillosis [Not Recovered/Not Resolved]
  - Malignant neoplasm progression [Fatal]
  - Pain [Not Recovered/Not Resolved]
  - Stress [Not Recovered/Not Resolved]
